FAERS Safety Report 21655730 (Version 1)
Quarter: 2022Q4

REPORT INFORMATION
  Report Type: Report from Study
  Country: US (occurrence: US)
  Receive Date: 20221129
  Receipt Date: 20221129
  Transmission Date: 20230113
  Serious: No
  Sender: FDA-Public Use
  Company Number: US-ABBVIE-4181750

PATIENT
  Sex: Male

DRUGS (2)
  1. RINVOQ [Suspect]
     Active Substance: UPADACITINIB
     Indication: Product used for unknown indication
  2. Moderna covid-19 [Concomitant]
     Indication: COVID-19 immunisation

REACTIONS (2)
  - Seborrhoea [Unknown]
  - Neck mass [Unknown]
